FAERS Safety Report 9404772 (Version 2)
Quarter: 2013Q3

REPORT INFORMATION
  Report Type: Spontaneous
  Country: TW (occurrence: TW)
  Receive Date: 20130717
  Receipt Date: 20130722
  Transmission Date: 20140515
  Serious: Yes (Hospitalization)
  Sender: FDA-Public Use
  Company Number: PHHY2013TW075753

PATIENT
  Age: 63 Year
  Sex: Female

DRUGS (1)
  1. ACLASTA [Suspect]
     Dosage: UNK
     Route: 042
     Dates: start: 20130628

REACTIONS (9)
  - Arrhythmia [Recovering/Resolving]
  - Palpitations [Unknown]
  - Chest discomfort [Unknown]
  - Heart rate irregular [Unknown]
  - Asthenia [Unknown]
  - Dizziness [Unknown]
  - Blood glucose increased [Unknown]
  - Discomfort [Unknown]
  - Nausea [Unknown]
